FAERS Safety Report 12386755 (Version 1)
Quarter: 2016Q2

REPORT INFORMATION
  Report Type: Spontaneous
  Country: US (occurrence: US)
  Receive Date: 20160519
  Receipt Date: 20160519
  Transmission Date: 20160815
  Serious: Yes (Hospitalization)
  Sender: FDA-Public Use
  Company Number: US-PFIZER INC-2016264614

PATIENT
  Age: 43 Year
  Sex: Female
  Weight: 46.8 kg

DRUGS (1)
  1. REVATIO [Suspect]
     Active Substance: SILDENAFIL CITRATE
     Indication: PULMONARY HYPERTENSION
     Dosage: 40 MG, 3X/DAY
     Route: 048
     Dates: start: 200908

REACTIONS (2)
  - Product use issue [Unknown]
  - Infection [Recovering/Resolving]

NARRATIVE: CASE EVENT DATE: 200908
